FAERS Safety Report 9052218 (Version 1)
Quarter: 2013Q1

REPORT INFORMATION
  Report Type: Spontaneous
  Country: AE (occurrence: AE)
  Receive Date: 20130206
  Receipt Date: 20130206
  Transmission Date: 20140127
  Serious: Yes (Other)
  Sender: FDA-Public Use
  Company Number: PHHY2013AE010252

PATIENT
  Age: 33 Year
  Sex: Male

DRUGS (1)
  1. CATAFLAM [Suspect]
     Indication: PAIN
     Dosage: 3 TIMES A DAY
     Route: 048
     Dates: start: 20130112, end: 20130113

REACTIONS (3)
  - Post procedural haemorrhage [Recovered/Resolved]
  - Gastric haemorrhage [Recovered/Resolved]
  - Haematemesis [Unknown]
